FAERS Safety Report 10101836 (Version 38)
Quarter: 2016Q1

REPORT INFORMATION
  Report Type: Spontaneous
  Country: CA (occurrence: CA)
  Receive Date: 20140424
  Receipt Date: 20160330
  Transmission Date: 20160525
  Serious: Yes (Hospitalization, Other)
  Sender: FDA-Public Use
  Company Number: CA-ROCHE-1388013

PATIENT
  Age: 44 Year
  Sex: Male
  Weight: 74 kg

DRUGS (24)
  1. XOLAIR [Suspect]
     Active Substance: OMALIZUMAB
     Route: 058
     Dates: start: 20111202
  2. ADVAIR HFA [Concomitant]
     Active Substance: FLUTICASONE PROPIONATE\SALMETEROL XINAFOATE
  3. XOLAIR [Suspect]
     Active Substance: OMALIZUMAB
     Route: 058
     Dates: start: 20131008
  4. XOLAIR [Suspect]
     Active Substance: OMALIZUMAB
     Route: 058
     Dates: start: 20150217
  5. XOLAIR [Suspect]
     Active Substance: OMALIZUMAB
     Route: 058
     Dates: start: 20110909, end: 20111202
  6. XOLAIR [Suspect]
     Active Substance: OMALIZUMAB
     Route: 058
     Dates: start: 20140414
  7. XOLAIR [Suspect]
     Active Substance: OMALIZUMAB
     Route: 058
     Dates: start: 20131119
  8. XOLAIR [Suspect]
     Active Substance: OMALIZUMAB
     Route: 058
     Dates: start: 20131217
  9. XOLAIR [Suspect]
     Active Substance: OMALIZUMAB
     Route: 058
     Dates: start: 20140526
  10. XOLAIR [Suspect]
     Active Substance: OMALIZUMAB
     Route: 058
     Dates: start: 20140818
  11. XOLAIR [Suspect]
     Active Substance: OMALIZUMAB
     Route: 058
     Dates: start: 20141110
  12. XOLAIR [Suspect]
     Active Substance: OMALIZUMAB
     Indication: ASTHMA
     Route: 058
     Dates: start: 20110616
  13. SPIRIVA [Concomitant]
     Active Substance: TIOTROPIUM BROMIDE MONOHYDRATE
  14. ATROVENT [Concomitant]
     Active Substance: IPRATROPIUM BROMIDE
  15. VENTOLIN [Concomitant]
     Active Substance: ALBUTEROL SULFATE
  16. XOLAIR [Suspect]
     Active Substance: OMALIZUMAB
     Route: 058
     Dates: start: 20141028
  17. QVAR [Concomitant]
     Active Substance: BECLOMETHASONE DIPROPIONATE
  18. OXEZE [Concomitant]
  19. XOLAIR [Suspect]
     Active Substance: OMALIZUMAB
     Route: 058
     Dates: start: 20140428
  20. XOLAIR [Suspect]
     Active Substance: OMALIZUMAB
     Route: 058
     Dates: start: 20140707
  21. XOLAIR [Suspect]
     Active Substance: OMALIZUMAB
     Route: 058
     Dates: start: 20160223
  22. XOLAIR [Suspect]
     Active Substance: OMALIZUMAB
     Route: 058
     Dates: start: 20160322
  23. XOLAIR [Suspect]
     Active Substance: OMALIZUMAB
     Route: 058
     Dates: start: 20140128
  24. XOLAIR [Suspect]
     Active Substance: OMALIZUMAB
     Route: 058
     Dates: start: 20140818

REACTIONS (41)
  - Malaise [Not Recovered/Not Resolved]
  - Haematochezia [Unknown]
  - Weight decreased [Unknown]
  - Vomiting [Unknown]
  - Pain in extremity [Unknown]
  - Lung disorder [Unknown]
  - General physical health deterioration [Unknown]
  - Blood pressure increased [Not Recovered/Not Resolved]
  - Asthenia [Unknown]
  - Cerebrovascular accident [Unknown]
  - Nervous system disorder [Unknown]
  - Bacterial infection [Unknown]
  - Hernia [Unknown]
  - Dyspnoea [Unknown]
  - Heart rate increased [Unknown]
  - Asthma [Unknown]
  - Pulmonary embolism [Unknown]
  - Sputum discoloured [Unknown]
  - Influenza [Unknown]
  - No therapeutic response [Unknown]
  - Blood potassium decreased [Unknown]
  - Circulatory collapse [Unknown]
  - Wheezing [Unknown]
  - Food poisoning [Unknown]
  - Muscular weakness [Unknown]
  - Deep vein thrombosis [Unknown]
  - Nausea [Not Recovered/Not Resolved]
  - Haemoptysis [Unknown]
  - Productive cough [Unknown]
  - Weight increased [Unknown]
  - Cluster headache [Unknown]
  - Diverticulitis [Unknown]
  - Body temperature increased [Unknown]
  - Body temperature decreased [Not Recovered/Not Resolved]
  - Multiple sclerosis [Unknown]
  - Nasopharyngitis [Unknown]
  - Abdominal abscess [Not Recovered/Not Resolved]
  - Haemorrhagic anaemia [Unknown]
  - Influenza like illness [Unknown]
  - Central nervous system lesion [Unknown]
  - Chest pain [Unknown]

NARRATIVE: CASE EVENT DATE: 20110804
